FAERS Safety Report 8985946 (Version 2)
Quarter: 2013Q1

REPORT INFORMATION
  Report Type: Report from Study
  Country: JP (occurrence: JP)
  Receive Date: 20121226
  Receipt Date: 20130311
  Transmission Date: 20140127
  Serious: Yes (Death)
  Sender: FDA-Public Use
  Company Number: JP-JNJFOC-20121209721

PATIENT
  Age: 84 Year
  Sex: Male

DRUGS (16)
  1. FINIBAX [Suspect]
     Indication: PNEUMONIA
     Route: 041
     Dates: start: 20121114, end: 20121117
  2. FINIBAX [Suspect]
     Indication: PNEUMONIA
     Route: 041
     Dates: start: 20121118, end: 20121119
  3. INOVAN [Concomitant]
     Route: 065
     Dates: start: 20121114, end: 20121120
  4. NORADRENALINE [Concomitant]
     Route: 065
     Dates: start: 20121114
  5. ELASPOL [Concomitant]
     Route: 065
     Dates: start: 20121114, end: 20121120
  6. ZITHROMAC [Concomitant]
     Indication: PNEUMONIA
     Route: 065
     Dates: start: 20121114, end: 20121116
  7. GLOVENIN [Concomitant]
     Route: 065
     Dates: start: 20121114, end: 20121114
  8. ANTITHROMBIN III HUMAN [Concomitant]
     Route: 065
     Dates: start: 20121114, end: 20121116
  9. RECOMODULIN [Concomitant]
     Route: 065
     Dates: start: 20121114, end: 20121118
  10. VENOGLOBULIN-IH [Concomitant]
     Route: 065
     Dates: start: 20121114, end: 20121114
  11. TAKEPRON [Concomitant]
     Route: 065
     Dates: start: 20121114
  12. GLUCOSE [Concomitant]
     Route: 065
     Dates: start: 20121114, end: 20121118
  13. OTSUKA MV [Concomitant]
     Route: 065
     Dates: start: 20121114
  14. ALBUMIN [Concomitant]
     Route: 065
     Dates: start: 20121115, end: 20121118
  15. PRECEDEX [Concomitant]
     Route: 065
     Dates: start: 20121115
  16. AMIPAREN [Concomitant]
     Indication: PARENTERAL NUTRITION
     Route: 065
     Dates: start: 20121116, end: 20121117

REACTIONS (2)
  - Pneumonia [Fatal]
  - Renal failure acute [Fatal]
